FAERS Safety Report 7337360-8 (Version None)
Quarter: 2011Q1

REPORT INFORMATION
  Report Type: 
  Country: None (occurrence: None)
  Receive Date: 20110222
  Receipt Date: 20110209
  Transmission Date: 20110831
  Serious: Yes (Hospitalization)
  Sender: FDA-Public Use
  Company Number: 2011MA001227

PATIENT
  Age: 67 Year
  Sex: Female

DRUGS (1)
  1. BUPROPION HCL [Suspect]
     Indication: DEPRESSION
     Dosage: 300 MG; QD; PO
     Route: 048

REACTIONS (6)
  - PARKINSONISM [None]
  - FALL [None]
  - DYSTONIA [None]
  - DIZZINESS [None]
  - CHOKING [None]
  - AKATHISIA [None]
